FAERS Safety Report 9034961 (Version 1)
Quarter: 2013Q1

REPORT INFORMATION
  Report Type: Spontaneous
  Country: CA (occurrence: None)
  Receive Date: 20130115
  Receipt Date: 20130115
  Transmission Date: 20140127
  Serious: Yes (Life-Threatening, Hospitalization)
  Sender: FDA-Public Use
  Company Number: 2013-00048

PATIENT
  Age: 25 Year
  Sex: Female

DRUGS (6)
  1. FLUOXETINE HYDROCHLORIDE (UNKNOWN) (FLUOXETINE HYDROCHLORIDE) UNK, UNKUNK [Suspect]
     Indication: DEPRESSION
  2. OLANZAPINE [Suspect]
     Indication: DEPRESSION
  3. QUETIAPINE FUMARATE [Suspect]
     Indication: DEPRESSION
  4. GABAPENTIN [Suspect]
     Indication: DEPRESSION
  5. ESCITALOPRAM (ESCITALOPRAM) [Suspect]
     Indication: DEPRESSION
  6. AMITRIPTYLINE (AMITRIPTYLINE) [Suspect]
     Indication: SUICIDE ATTEMPT

REACTIONS (12)
  - Tachycardia [None]
  - Pulse absent [None]
  - Coma [None]
  - Electrocardiogram QRS complex prolonged [None]
  - Electrocardiogram QT prolonged [None]
  - Hypotension [None]
  - Hypokalaemia [None]
  - Hypocalcaemia [None]
  - Intentional overdose [None]
  - Overdose [None]
  - Suicide attempt [None]
  - Cardiotoxicity [None]
